FAERS Safety Report 18566719 (Version 2)
Quarter: 2020Q4

REPORT INFORMATION
  Report Type: Spontaneous
  Country: BR (occurrence: BR)
  Receive Date: 20201201
  Receipt Date: 20201211
  Transmission Date: 20210114
  Serious: Yes (Death, Other)
  Sender: FDA-Public Use
  Company Number: BR-SA-2020SA340645

PATIENT

DRUGS (3)
  1. CLEXANE [Suspect]
     Active Substance: ENOXAPARIN SODIUM
     Dosage: 40 MG, QD
     Route: 058
     Dates: start: 20201019, end: 20201019
  2. CLEXANE [Suspect]
     Active Substance: ENOXAPARIN SODIUM
     Indication: EMBOLISM VENOUS
     Dosage: 40 MG, QD
     Route: 058
     Dates: start: 20201018, end: 20201018
  3. CLEXANE [Suspect]
     Active Substance: ENOXAPARIN SODIUM
     Dosage: 40 MG, QD
     Route: 058
     Dates: start: 20201021, end: 20201021

REACTIONS (4)
  - Multiple organ dysfunction syndrome [Fatal]
  - Cholecystitis [Fatal]
  - Haemodynamic instability [Fatal]
  - Shock haemorrhagic [Fatal]

NARRATIVE: CASE EVENT DATE: 20201021
